FAERS Safety Report 16610482 (Version 1)
Quarter: 2019Q3

REPORT INFORMATION
  Report Type: Spontaneous
  Country: US (occurrence: US)
  Receive Date: 20190722
  Receipt Date: 20190722
  Transmission Date: 20191004
  Serious: Yes (Other)
  Sender: FDA-Public Use
  Company Number: US-SA-2019SA195435

PATIENT
  Age: 5 Year
  Sex: Male

DRUGS (1)
  1. ACT ANTICAVITY FLUORIDE KIDS SPONGEBOB [Suspect]
     Active Substance: SODIUM FLUORIDE
     Dosage: UNK
     Route: 065

REACTIONS (1)
  - Coeliac disease [Unknown]
